FAERS Safety Report 4396793-2 (Version None)
Quarter: 2004Q3

REPORT INFORMATION
  Report Type: 
  Country: None (occurrence: None)
  Receive Date: 20040713
  Receipt Date: 20040713
  Transmission Date: 20050211
  Serious: Yes (Hospitalization)
  Sender: FDA-Public Use
  Company Number: None

PATIENT
  Sex: Male
  Weight: 83.4 kg

DRUGS (12)
  1. GLIADEL [Suspect]
     Indication: GLIOBLASTOMA MULTIFORME
     Dosage: 7.7 NG PER WAFER - MAX OF 8
     Dates: start: 20040617
  2. 06BENZYKGUANINE (06BG) [Suspect]
     Indication: GLIOBLASTOMA MULTIFORME
     Dosage: 120 MG/M2 INFUSION X 5 DAYS
     Dates: start: 20040617, end: 20040622
  3. DECADRON [Concomitant]
  4. DILANTIN [Concomitant]
  5. NORVASC [Concomitant]
  6. LISINOPRIL [Concomitant]
  7. SYNTHROID [Concomitant]
  8. NOVOLOG [Concomitant]
  9. LEXAPRO [Concomitant]
  10. CALCIUM [Concomitant]
  11. SAW PALMENTO [Concomitant]
  12. MULTI-VITAMIN [Concomitant]

REACTIONS (5)
  - BLOOD SODIUM DECREASED [None]
  - CULTURE URINE POSITIVE [None]
  - ESCHERICHIA INFECTION [None]
  - PYREXIA [None]
  - SUBCLAVIAN VEIN THROMBOSIS [None]
